FAERS Safety Report 6707526-6 (Version None)
Quarter: 2010Q2

REPORT INFORMATION
  Report Type: 
  Country: None (occurrence: None)
  Receive Date: 20100429
  Receipt Date: 20100420
  Transmission Date: 20101027
  Serious: Yes (Other)
  Sender: FDA-Public Use
  Company Number: 2010SP022901

PATIENT
  Age: 52 Year
  Sex: Male

DRUGS (6)
  1. PEGINTERFERON ALFA-2B [Suspect]
     Indication: HEPATITIS C
     Dosage: 120 MCG;QW;SC
     Route: 058
     Dates: start: 20030301
  2. INTERFRON ALFA-2B RECOMBINANT (INTERFERON ALFA-2B) [Suspect]
     Indication: HEPATITIS C
     Dosage: 3 MIU;TIW
     Dates: start: 20010501
  3. RIBAVIRIN [Suspect]
     Indication: HEPATITIS C
     Dosage: 1 GM;QD;PO ; 1 GM;QD;PO
     Route: 048
     Dates: start: 20010501
  4. RIBAVIRIN [Suspect]
     Indication: HEPATITIS C
     Dosage: 1 GM;QD;PO ; 1 GM;QD;PO
     Route: 048
     Dates: start: 20030301
  5. PROCHLORPERAZINE MALEATE [Suspect]
     Indication: INFLUENZA LIKE ILLNESS
  6. PROCHLORPERAZINE MALEATE [Suspect]
     Indication: NAUSEA

REACTIONS (8)
  - DEPRESSED MOOD [None]
  - DRUG INTERACTION [None]
  - GAIT DISTURBANCE [None]
  - HEPATIC FAILURE [None]
  - HEPATIC NEOPLASM MALIGNANT [None]
  - INFLUENZA LIKE ILLNESS [None]
  - NAUSEA [None]
  - PARKINSONISM [None]
